FAERS Safety Report 9419063 (Version 1)
Quarter: 2013Q3

REPORT INFORMATION
  Report Type: Spontaneous
  Country: BR (occurrence: BR)
  Receive Date: 20130725
  Receipt Date: 20130725
  Transmission Date: 20140515
  Serious: Yes (Death, Other)
  Sender: FDA-Public Use
  Company Number: PHHY2013BR078417

PATIENT
  Age: 71 Year
  Sex: Female
  Weight: 85 kg

DRUGS (1)
  1. DIOVAN HCT [Suspect]
     Indication: BLOOD PRESSURE INADEQUATELY CONTROLLED
     Dosage: 1 DF, A DAY
     Route: 048

REACTIONS (1)
  - Cardiac arrest [Fatal]
